FAERS Safety Report 8936401 (Version 1)
Quarter: 2012Q4

REPORT INFORMATION
  Report Type: 
  Country: JP (occurrence: JP)
  Receive Date: 20121130
  Receipt Date: 20121130
  Transmission Date: 20130627
  Serious: Yes (Other)
  Sender: FDA-Public Use
  Company Number: JP-ELI_LILLY_AND_COMPANY-JP201211007008

PATIENT
  Age: 70 Year
  Sex: Female

DRUGS (3)
  1. CYMBALTA [Suspect]
     Indication: DEPRESSION
     Dosage: 20 mg, each morning
     Route: 048
     Dates: start: 20120118, end: 20121116
  2. BLOPRESS [Concomitant]
  3. BENZALIN [Concomitant]

REACTIONS (2)
  - Dyslalia [Unknown]
  - Dizziness [Unknown]
